FAERS Safety Report 10183306 (Version 1)
Quarter: 2014Q2

REPORT INFORMATION
  Report Type: Spontaneous
  Country: US (occurrence: None)
  Receive Date: 20140416
  Receipt Date: 20140416
  Transmission Date: 20141212
  Serious: No
  Sender: FDA-Public Use
  Company Number: 163-POMAL-13115358

PATIENT
  Age: 75 Year
  Sex: Female

DRUGS (1)
  1. POMALYST (POMALIDOMIDE) (4 MILLIGRAM, CAPSULES) [Suspect]
     Indication: PLASMA CELL MYELOMA
     Route: 048
     Dates: start: 201304

REACTIONS (6)
  - Musculoskeletal chest pain [None]
  - Back pain [None]
  - Asthenia [None]
  - Drug ineffective [None]
  - Pain in extremity [None]
  - Asthenia [None]
